FAERS Safety Report 5280294-3 (Version None)
Quarter: 2007Q1

REPORT INFORMATION
  Report Type: 
  Country: None (occurrence: None)
  Receive Date: 20070329
  Receipt Date: 20070321
  Transmission Date: 20070707
  Serious: Yes (Death, Other)
  Sender: FDA-Public Use
  Company Number: AU-GLAXOSMITHKLINE-B0460069A

PATIENT
  Age: 78 Year
  Sex: Female
  Weight: 80 kg

DRUGS (6)
  1. AVANDIA [Suspect]
     Dosage: 8MG PER DAY
     Route: 048
     Dates: start: 20050116
  2. ATACAND HCT [Concomitant]
  3. DIABEX [Concomitant]
  4. NORVASC [Concomitant]
  5. ZOCOR [Concomitant]
  6. ASTRIX [Concomitant]

REACTIONS (2)
  - CHEST PAIN [None]
  - MYOCARDIAL INFARCTION [None]
